FAERS Safety Report 15731156 (Version 2)
Quarter: 2019Q1

REPORT INFORMATION
  Report Type: Spontaneous
  Country: GB (occurrence: GB)
  Receive Date: 20181217
  Receipt Date: 20190104
  Transmission Date: 20190417
  Serious: Yes (Other)
  Sender: FDA-Public Use
  Company Number: GB-MYLANLABS-2018M1092874

PATIENT
  Sex: Female

DRUGS (4)
  1. MEMANTINE. [Suspect]
     Active Substance: MEMANTINE
     Indication: DEMENTIA ALZHEIMER^S TYPE
     Route: 065
  2. DONEPEZIL. [Suspect]
     Active Substance: DONEPEZIL
     Indication: SEDATIVE THERAPY
     Dosage: UNK
     Route: 065
  3. DONEPEZIL. [Suspect]
     Active Substance: DONEPEZIL
     Indication: DEMENTIA ALZHEIMER^S TYPE
  4. MEMANTINE. [Suspect]
     Active Substance: MEMANTINE
     Indication: SEDATIVE THERAPY
     Dosage: UNK
     Route: 065

REACTIONS (2)
  - Coma [Unknown]
  - Dementia Alzheimer^s type [Unknown]
